FAERS Safety Report 23387964 (Version 1)
Quarter: 2024Q1

REPORT INFORMATION
  Report Type: Spontaneous
  Country: US (occurrence: None)
  Receive Date: 20240109
  Receipt Date: 20240109
  Transmission Date: 20240409
  Serious: Yes (Other)
  Sender: FDA-Public Use
  Company Number: None

PATIENT
  Age: 69 Year
  Sex: Female
  Weight: 108.86 kg

DRUGS (13)
  1. BREO ELLIPTA [Suspect]
     Active Substance: FLUTICASONE FUROATE\VILANTEROL TRIFENATATE
     Indication: Asthma
     Dosage: FREQUENCY : DAILY;?
     Route: 048
     Dates: start: 20231107, end: 20231126
  2. BACLOFEN [Concomitant]
     Active Substance: BACLOFEN
  3. FLUOXETINE [Concomitant]
     Active Substance: FLUOXETINE HYDROCHLORIDE
  4. LORAZEPAM [Concomitant]
     Active Substance: LORAZEPAM
  5. METOPROLOL SUCCINATE [Concomitant]
     Active Substance: METOPROLOL SUCCINATE
  6. PREGABALIN [Concomitant]
     Active Substance: PREGABALIN
  7. MELOXICAM [Concomitant]
     Active Substance: MELOXICAM
  8. VITAMIN C [Concomitant]
     Active Substance: ASCORBIC ACID
  9. Vit. B12 [Concomitant]
  10. Vit. B Complex [Concomitant]
  11. Multivitamin (women over 50) [Concomitant]
  12. CLARITIN [Concomitant]
     Active Substance: LORATADINE
  13. BREO ELLIPTA [Concomitant]
     Active Substance: FLUTICASONE FUROATE\VILANTEROL TRIFENATATE

REACTIONS (4)
  - Depression [None]
  - Social avoidant behaviour [None]
  - Fatigue [None]
  - Therapy cessation [None]

NARRATIVE: CASE EVENT DATE: 20231107
